FAERS Safety Report 17408783 (Version 1)
Quarter: 2020Q1

REPORT INFORMATION
  Report Type: Spontaneous
  Country: GB (occurrence: GB)
  Receive Date: 20200212
  Receipt Date: 20200212
  Transmission Date: 20200409
  Serious: Yes (Other)
  Sender: FDA-Public Use
  Company Number: GB-MYLANLABS-2020M1015257

PATIENT
  Age: 60 Year
  Sex: Female
  Weight: 49 kg

DRUGS (20)
  1. SALBUTAMOL [Concomitant]
     Active Substance: ALBUTEROL
     Dosage: 4 DOSAGE FORM, QD
     Dates: start: 20190910
  2. IVABRADINE [Concomitant]
     Active Substance: IVABRADINE
     Dosage: 2 DOSAGE FORM, QD
     Dates: start: 20190816
  3. SODIUM CHLORIDE. [Concomitant]
     Active Substance: SODIUM CHLORIDE
     Dosage: 2 DOSAGE FORM, QD (USE AS DIRECTED)
     Dates: start: 20190910
  4. LEVOFLOXACIN. [Suspect]
     Active Substance: LEVOFLOXACIN
     Indication: PRODUCT USED FOR UNKNOWN INDICATION
     Dosage: 500 MILLIGRAM
     Dates: start: 20190517
  5. CARBOCISTEINE [Concomitant]
     Active Substance: CARBOCYSTEINE
     Dosage: 2 DOSAGE FORM (TAKE 2- 3 TIMES DAILY)
     Dates: start: 20190816
  6. SODIUM CHLORIDE. [Concomitant]
     Active Substance: SODIUM CHLORIDE
     Dosage: 4 DOSAGE FORM, QD
     Dates: start: 20191113, end: 20191114
  7. PARACETAMOL [Concomitant]
     Active Substance: ACETAMINOPHEN
     Dosage: 2 DOSAGE FORM (TO BE TAKEN EVERY 4-6 HOURS UP TO FOUR TIME)
     Dates: start: 20190816
  8. NYSTATIN. [Concomitant]
     Active Substance: NYSTATIN
     Dosage: 4 DOSAGE FORM, QD
     Dates: start: 20191125
  9. BRALTUS [Concomitant]
     Active Substance: TIOTROPIUM BROMIDE
     Dosage: 1 DOSAGE FORM, QD
     Dates: start: 20190816
  10. RAMIPRIL. [Concomitant]
     Active Substance: RAMIPRIL
     Dosage: 2 DOSAGE FORM, QD
     Dates: start: 20191015
  11. LACTULOSE. [Concomitant]
     Active Substance: LACTULOSE
     Dosage: 20 MILLILITER, QD
     Dates: start: 20190507
  12. FOSTAIR [Concomitant]
     Active Substance: BECLOMETHASONE\FORMOTEROL
     Dosage: PUFFS
     Route: 055
     Dates: start: 20190816
  13. SACUBITRIL [Concomitant]
     Active Substance: SACUBITRIL
     Dosage: 2 DOSAGE FORM, QD
     Dates: start: 20190816, end: 20191015
  14. FUROSEMIDE. [Concomitant]
     Active Substance: FUROSEMIDE
     Dosage: UNK, PRN (ALTERNATE DAYS THEN)
     Dates: start: 20190816
  15. NEBIVOLOL. [Concomitant]
     Active Substance: NEBIVOLOL
     Dosage: 1 DOSAGE FORM, QD
     Dates: start: 20190816
  16. BECLOMETASONE [Concomitant]
     Active Substance: BECLOMETHASONE DIPROPIONATE
     Dosage: 4 DOSAGE FORM, QD (PUFFS)
     Dates: start: 20191118
  17. RIVAROXABAN [Concomitant]
     Active Substance: RIVAROXABAN
     Dosage: 1 DOSAGE FORM, QD
     Dates: start: 20191015
  18. AMOXICILLIN. [Concomitant]
     Active Substance: AMOXICILLIN
     Dosage: 3 DOSAGE FORM, QD
     Dates: start: 20190613
  19. SPIRONOLACTONE. [Concomitant]
     Active Substance: SPIRONOLACTONE
     Dosage: TO BE TAKEN EACH MORNING
     Dates: start: 20190816
  20. PREDNISOLONE. [Concomitant]
     Active Substance: PREDNISOLONE
     Dosage: 6 DOSAGE FORM, QD (TAKE WITH FOOD (RESCUE PACK)
     Dates: start: 20190816

REACTIONS (6)
  - Palpitations [Unknown]
  - Tendon pain [Unknown]
  - Tendon disorder [Unknown]
  - Dizziness [Unknown]
  - Tendonitis [Recovered/Resolved]
  - Malaise [Unknown]

NARRATIVE: CASE EVENT DATE: 20190517
